FAERS Safety Report 9393709 (Version 2)
Quarter: 2013Q3

REPORT INFORMATION
  Report Type: Spontaneous
  Country: DE (occurrence: DE)
  Receive Date: 20130710
  Receipt Date: 20130723
  Transmission Date: 20140515
  Serious: Yes (Other)
  Sender: FDA-Public Use
  Company Number: DE-JNJFOC-20130702986

PATIENT
  Age: 60 Year
  Sex: Female

DRUGS (1)
  1. TOPAMAX [Suspect]
     Indication: MIGRAINE PROPHYLAXIS
     Route: 048

REACTIONS (1)
  - Hypoacusis [Unknown]
